FAERS Safety Report 6229801-4 (Version None)
Quarter: 2009Q2

REPORT INFORMATION
  Report Type: 
  Country: None (occurrence: None)
  Receive Date: 20090615
  Receipt Date: 20090603
  Transmission Date: 20091009
  Serious: Yes (Hospitalization, Other)
  Sender: FDA-Public Use
  Company Number: US-PFIZER INC-2008075349

PATIENT
  Sex: Female
  Weight: 80.272 kg

DRUGS (12)
  1. CHANTIX [Suspect]
     Indication: SMOKING CESSATION THERAPY
     Dosage: 0.5 MG, 1X/DAY
     Route: 048
     Dates: start: 20080701
  2. CHANTIX [Suspect]
     Dosage: 0.5 MG, 1X/DAY
     Route: 048
     Dates: start: 20090201, end: 20090301
  3. PALIPERIDONE [Concomitant]
  4. DEPAKOTE [Concomitant]
  5. KLONOPIN [Concomitant]
  6. KLONOPIN [Concomitant]
     Dosage: UNK
  7. WELLBUTRIN [Concomitant]
  8. TOPAMAX [Concomitant]
     Dosage: UNK
  9. XANAX [Concomitant]
     Dosage: UNK
  10. PROZAC [Concomitant]
     Dosage: UNK
  11. NICOTINE [Concomitant]
     Dosage: UNK
     Route: 062
  12. OMEGA [Concomitant]
     Dosage: UNK

REACTIONS (7)
  - DEPRESSED MOOD [None]
  - HALLUCINATION [None]
  - HALLUCINATION, AUDITORY [None]
  - HYPERSOMNIA [None]
  - MANIA [None]
  - SUICIDAL IDEATION [None]
  - WEIGHT INCREASED [None]
